FAERS Safety Report 6760459-1 (Version None)
Quarter: 2010Q2

REPORT INFORMATION
  Report Type: 
  Country: None (occurrence: None)
  Receive Date: 20100608
  Receipt Date: 20100527
  Transmission Date: 20101027
  Serious: Yes (Other)
  Sender: FDA-Public Use
  Company Number: PHHY2010AU21019

PATIENT
  Sex: Male
  Weight: 90 kg

DRUGS (2)
  1. CLOZARIL [Suspect]
     Indication: SCHIZOPHRENIA
     Dosage: 200 MG, UNK
     Route: 048
     Dates: start: 20100211, end: 20100401
  2. AMISULPRIDE [Concomitant]
     Dosage: 200 MG DAILY

REACTIONS (8)
  - BLOOD PRESSURE INCREASED [None]
  - CARDIAC FAILURE [None]
  - CONDITION AGGRAVATED [None]
  - CONFUSIONAL STATE [None]
  - EJECTION FRACTION DECREASED [None]
  - HALLUCINATION, AUDITORY [None]
  - LEFT VENTRICULAR DYSFUNCTION [None]
  - PARANOIA [None]
